FAERS Safety Report 13928636 (Version 5)
Quarter: 2020Q3

REPORT INFORMATION
  Report Type: Spontaneous
  Country: US (occurrence: US)
  Receive Date: 20170901
  Receipt Date: 20200826
  Transmission Date: 20201102
  Serious: Yes (Life-Threatening, Other)
  Sender: FDA-Public Use
  Company Number: US-PFIZER INC-2017372710

PATIENT
  Age: 74 Year
  Sex: Female

DRUGS (6)
  1. BUPIVACAINE HCL [Suspect]
     Active Substance: BUPIVACAINE HYDROCHLORIDE
     Dosage: 10 MG/ML, UNK, (IN 50ML SOLUTION)
     Route: 037
  2. MORPHINE SULFATE. [Suspect]
     Active Substance: MORPHINE SULFATE
     Indication: PAIN
     Dosage: 35 MG/ML, (IN 50ML SOLUTION)
     Route: 037
  3. MORPHINE SULFATE. [Suspect]
     Active Substance: MORPHINE SULFATE
     Dosage: 350 MG, UNK
     Route: 037
  4. MORPHINE SULFATE. [Suspect]
     Active Substance: MORPHINE SULFATE
     Dosage: 500 MG, UNK (50 ML SOLUTION)
     Route: 037
  5. BUPIVACAINE HCL [Suspect]
     Active Substance: BUPIVACAINE HYDROCHLORIDE
     Dosage: 1750 MG, UNK (50 ML SOLUTION)
     Route: 037
  6. BUPIVACAINE HCL [Suspect]
     Active Substance: BUPIVACAINE HYDROCHLORIDE
     Dosage: 100 MG, UNK
     Route: 037

REACTIONS (9)
  - Status epilepticus [Recovered/Resolved]
  - Neuropathy peripheral [Unknown]
  - Neurogenic shock [Unknown]
  - Respiratory depression [Unknown]
  - Delayed recovery from anaesthesia [Unknown]
  - Hypotension [Unknown]
  - Encephalopathy [Unknown]
  - Overdose [Unknown]
  - Toxicity to various agents [Unknown]
